FAERS Safety Report 15275913 (Version 1)
Quarter: 2018Q3

REPORT INFORMATION
  Report Type: Spontaneous
  Country: US (occurrence: US)
  Receive Date: 20180727
  Receipt Date: 20180727
  Transmission Date: 20181010
  Serious: No
  Sender: FDA-Public Use
  Company Number: None

PATIENT
  Age: 89 Year
  Sex: Male

DRUGS (5)
  1. HYDROMORPHONE [Suspect]
     Active Substance: HYDROMORPHONE
     Indication: PAIN
     Dosage: ?          OTHER DOSE:VARIABLE;?
     Route: 048
     Dates: start: 20180528, end: 20180528
  2. SODIUM CHLORIDE. [Concomitant]
     Active Substance: SODIUM CHLORIDE
  3. ISOVUE [Concomitant]
     Active Substance: IOPAMIDOL
  4. LORAZAPAM [Concomitant]
     Active Substance: LORAZEPAM
  5. METOCLOPRAMIDE. [Concomitant]
     Active Substance: METOCLOPRAMIDE

REACTIONS (3)
  - Muscle haemorrhage [None]
  - Hypotension [None]
  - Mental status changes [None]

NARRATIVE: CASE EVENT DATE: 20180529
